FAERS Safety Report 15972822 (Version 2)
Quarter: 2019Q2

REPORT INFORMATION
  Report Type: Spontaneous
  Country: US (occurrence: US)
  Receive Date: 20190216
  Receipt Date: 20190414
  Transmission Date: 20190711
  Serious: No
  Sender: FDA-Public Use
  Company Number: US-JNJFOC-20190200400

PATIENT
  Age: 78 Year
  Sex: Female
  Weight: 79.38 kg

DRUGS (8)
  1. XARELTO [Suspect]
     Active Substance: RIVAROXABAN
     Indication: PULMONARY VENOUS THROMBOSIS
     Route: 048
     Dates: start: 201802, end: 201901
  2. LASIX [Suspect]
     Active Substance: FUROSEMIDE
     Indication: THROMBOSIS
     Route: 065
     Dates: start: 20190128
  3. LASIX [Suspect]
     Active Substance: FUROSEMIDE
     Indication: THROMBOSIS
     Route: 065
     Dates: start: 201802
  4. XARELTO [Suspect]
     Active Substance: RIVAROXABAN
     Indication: PULMONARY VENOUS THROMBOSIS
     Route: 048
     Dates: start: 20190128
  5. XARELTO [Suspect]
     Active Substance: RIVAROXABAN
     Indication: DEEP VEIN THROMBOSIS
     Route: 048
     Dates: start: 20190128
  6. XARELTO [Suspect]
     Active Substance: RIVAROXABAN
     Indication: DEEP VEIN THROMBOSIS
     Route: 048
     Dates: start: 201802, end: 201901
  7. POTASSIUM [Suspect]
     Active Substance: POTASSIUM
     Indication: THROMBOSIS
     Route: 065
     Dates: start: 201802
  8. POTASSIUM [Suspect]
     Active Substance: POTASSIUM
     Indication: THROMBOSIS
     Route: 065
     Dates: start: 20190128

REACTIONS (2)
  - Blood creatinine increased [Unknown]
  - Epistaxis [Not Recovered/Not Resolved]

NARRATIVE: CASE EVENT DATE: 201802
